FAERS Safety Report 9515081 (Version 1)
Quarter: 2013Q1

REPORT INFORMATION
  Report Type: Spontaneous
  Country: US (occurrence: None)
  Receive Date: 20130305
  Receipt Date: 20130305
  Transmission Date: 20140127
  Serious: Yes (Hospitalization)
  Sender: FDA-Public Use
  Company Number: 163-21880-12043129

PATIENT
  Age: 85 Year
  Sex: Male
  Weight: 80.74 kg

DRUGS (9)
  1. REVLIMID [Suspect]
     Indication: PLASMA CELL MYELOMA
     Dosage: 25 MG, DAILY X21 DAYS, PO
     Route: 048
     Dates: start: 201112
  2. COUMADIN (WARFARIN SODIUM) (UNKNOWN) [Concomitant]
  3. DIGOXIN (DIGOXIN) (UNKNOWN) (DIGOXIN) [Concomitant]
  4. ASACOL (MESALAZINE) (UNKNOWN) [Concomitant]
  5. DEXAMETHASONE (DEXAMETHASONE) (UNKNOWN) [Concomitant]
  6. METOPROLOL (METOPROLOL) (UNKNOWN) [Concomitant]
  7. ZOMETA (ZOLEDRONIC ACID) (UNKNOWN) [Concomitant]
  8. FLORASTOR (SACCHAROMYCES BOULARDII) (UNKNOWN)? [Concomitant]
  9. PERCOCET (OXYOCET) (UNKNOWN) [Concomitant]

REACTIONS (1)
  - Thrombosis [None]
